FAERS Safety Report 23332255 (Version 1)
Quarter: 2023Q4

REPORT INFORMATION
  Report Type: Report from Study
  Country: US (occurrence: None)
  Receive Date: 20231222
  Receipt Date: 20231222
  Transmission Date: 20240110
  Serious: Yes (Other)
  Sender: FDA-Public Use
  Company Number: 2023A272967

PATIENT
  Sex: Female
  Weight: 82.9 kg

DRUGS (1)
  1. CALQUENCE [Suspect]
     Active Substance: ACALABRUTINIB
     Indication: Chronic lymphocytic leukaemia
     Route: 048

REACTIONS (16)
  - Myelosuppression [Unknown]
  - Anaemia [Unknown]
  - Thrombocytopenia [Unknown]
  - Skin discolouration [Unknown]
  - Lymphoedema [Unknown]
  - Skin discolouration [Unknown]
  - Fatigue [Unknown]
  - Decreased appetite [Unknown]
  - Night sweats [Unknown]
  - Palpitations [Unknown]
  - Back pain [Unknown]
  - Musculoskeletal stiffness [Unknown]
  - Lymphadenopathy [Unknown]
  - Ill-defined disorder [Unknown]
  - Amnesia [Unknown]
  - Lymphocytosis [Unknown]
